FAERS Safety Report 5745618-9 (Version None)
Quarter: 2008Q2

REPORT INFORMATION
  Report Type: 
  Country: None (occurrence: None)
  Receive Date: 20080519
  Receipt Date: 20080408
  Transmission Date: 20081010
  Serious: No
  Sender: FDA-Public Use
  Company Number: TPA2008A00467

PATIENT
  Age: 61 Year
  Sex: Male
  Weight: 133.8111 kg

DRUGS (8)
  1. ROZEREM [Suspect]
     Indication: SLEEP DISORDER
     Dosage: 8 MG, QHS, PER ORAL
     Route: 048
     Dates: start: 20080331, end: 20080407
  2. SLUCONAZOLE (ANTIFUNGALS) [Concomitant]
  3. BENAZEPRIL HCL [Concomitant]
  4. FLONASE [Concomitant]
  5. AUGMENTIN XR (AMOXICILLIN, CLAVULANATE POTASSIUM) [Concomitant]
  6. PROPOXYPHENE/APAP (PROPOXYPHENE, PARACETAMOL) [Concomitant]
  7. SKELAXIN [Concomitant]
  8. NAPROXEN [Concomitant]

REACTIONS (3)
  - INITIAL INSOMNIA [None]
  - POOR QUALITY SLEEP [None]
  - SOMNOLENCE [None]
